FAERS Safety Report 13504716 (Version 2)
Quarter: 2017Q3

REPORT INFORMATION
  Report Type: Spontaneous
  Country: US (occurrence: US)
  Receive Date: 20170502
  Receipt Date: 20170724
  Transmission Date: 20171127
  Serious: No
  Sender: FDA-Public Use
  Company Number: US-IMPAX LABORATORIES, INC-2017-IPXL-00108

PATIENT
  Age: 60 Year
  Sex: Male
  Weight: 181 kg

DRUGS (1)
  1. RYTARY [Suspect]
     Active Substance: CARBIDOPA\LEVODOPA
     Indication: PARKINSON^S DISEASE
     Dosage: 23.75/95 MG, 4 CAPSULES, 3/DAY; EVERY 8 HOURS
     Route: 048
     Dates: start: 201612, end: 20170220

REACTIONS (1)
  - Tremor [Recovering/Resolving]
